FAERS Safety Report 5007291-7 (Version None)
Quarter: 2006Q2

REPORT INFORMATION
  Report Type: 
  Country: None (occurrence: None)
  Receive Date: 20060519
  Receipt Date: 20060519
  Transmission Date: 20061013
  Serious: No
  Sender: FDA-Public Use
  Company Number: None

PATIENT
  Age: 62 Year
  Sex: Male
  Weight: 80.5 kg

DRUGS (7)
  1. CLOZAPINE [Suspect]
     Indication: BIPOLAR DISORDER
     Dosage: 75 MG PO BID
     Route: 048
     Dates: end: 20060314
  2. DEPAKOTE [Concomitant]
  3. MYSOLINE [Concomitant]
  4. LITHIUM CARBONATE [Concomitant]
  5. T4 [Concomitant]
  6. OXCARBAZEPINE [Concomitant]
  7. TERAZOSIN HCL [Concomitant]

REACTIONS (1)
  - WHITE BLOOD CELL COUNT DECREASED [None]
